FAERS Safety Report 5974247-7 (Version None)
Quarter: 2008Q4

REPORT INFORMATION
  Report Type: 
  Country: None (occurrence: None)
  Receive Date: 20081201
  Receipt Date: 20081126
  Transmission Date: 20090506
  Serious: Yes (Life-Threatening, Hospitalization)
  Sender: FDA-Public Use
  Company Number: JP-PFIZER INC-2008090269

PATIENT
  Sex: Female
  Weight: 54 kg

DRUGS (4)
  1. ZYVOX [Suspect]
     Indication: POST PROCEDURAL INFECTION
     Dosage: DAILY DOSE:1200MG
     Route: 042
     Dates: start: 20081004, end: 20081017
  2. COTRIM [Suspect]
     Indication: POST PROCEDURAL INFECTION
     Dosage: TEXT:6 TABLETS
     Route: 048
     Dates: start: 20080929
  3. VANCOMYCIN [Suspect]
     Indication: POST PROCEDURAL INFECTION
     Dosage: DAILY DOSE:1GRAM
     Dates: start: 20080924, end: 20081001
  4. VANCOMYCIN [Suspect]
     Dosage: DAILY DOSE:2GRAM
     Dates: start: 20081002, end: 20081010

REACTIONS (2)
  - BONE MARROW FAILURE [None]
  - HYPONATRAEMIA [None]
